FAERS Safety Report 17278916 (Version 3)
Quarter: 2020Q1

REPORT INFORMATION
  Report Type: Report from Study
  Country: AU (occurrence: AU)
  Receive Date: 20200116
  Receipt Date: 20200131
  Transmission Date: 20200409
  Serious: Yes (Other)
  Sender: FDA-Public Use
  Company Number: AU-EXELIXIS-CABO-19025774

PATIENT
  Age: 77 Year
  Sex: Female

DRUGS (2)
  1. CABOMETYX [Suspect]
     Active Substance: CABOZANTINIB S-MALATE
     Indication: RENAL CELL CARCINOMA
     Dosage: UNK
  2. CABOMETYX [Suspect]
     Active Substance: CABOZANTINIB S-MALATE
     Dosage: 40 MG, QD

REACTIONS (6)
  - Neutropenia [Recovering/Resolving]
  - White blood cell count decreased [Recovering/Resolving]
  - Mucosal inflammation [Unknown]
  - Thrombocytopenia [Recovering/Resolving]
  - Fatigue [Unknown]
  - Lethargy [Recovering/Resolving]

NARRATIVE: CASE EVENT DATE: 20200106
